FAERS Safety Report 8493108-5 (Version None)
Quarter: 2012Q3

REPORT INFORMATION
  Report Type: 
  Country: None (occurrence: None)
  Receive Date: 20120706
  Receipt Date: 20120627
  Transmission Date: 20120928
  Serious: Yes (Hospitalization)
  Sender: FDA-Public Use
  Company Number: JP-JNJFOC-20120608132

PATIENT
  Age: 80 Year
  Sex: Male

DRUGS (8)
  1. TRAMADOL HCL [Suspect]
     Dosage: 2 TABLETS PER DAY, TWICE DAILY
     Route: 048
     Dates: start: 20120509, end: 20120522
  2. MOTILIUM [Concomitant]
     Indication: PRODUCT USED FOR UNKNOWN INDICATION
     Dosage: 2 TABLETS PER DAY, TWICE DAILY
     Route: 048
  3. MUCOSTA [Concomitant]
     Indication: PRODUCT USED FOR UNKNOWN INDICATION
     Dosage: 2 TABLETS PER DAY, TWICE DAILY
     Route: 048
  4. YODEL [Concomitant]
     Indication: PRODUCT USED FOR UNKNOWN INDICATION
     Dosage: 2 TABLETS PER DAY, TWICE DAILY
     Route: 048
  5. GABAPENTIN [Concomitant]
     Indication: PRODUCT USED FOR UNKNOWN INDICATION
     Dosage: 2 TABLETS PER DAY, TWICE DAILY
     Route: 048
  6. RHUBARB [Concomitant]
     Indication: PRODUCT USED FOR UNKNOWN INDICATION
     Dosage: 2 TABLETS PER DAY, TWICE DAILY
     Route: 048
  7. TRAMADOL HCL [Suspect]
     Indication: PRODUCT USED FOR UNKNOWN INDICATION
     Dosage: 4 TABLETS PER DAY, TWICE DAILY
     Route: 048
     Dates: start: 20120523
  8. VOLTAREN [Concomitant]
     Indication: PRODUCT USED FOR UNKNOWN INDICATION
     Dosage: 2 TABLETS PER DAY, TWICE DAILY
     Route: 054

REACTIONS (1)
  - ILEUS [None]
